FAERS Safety Report 12897554 (Version 1)
Quarter: 2016Q4

REPORT INFORMATION
  Report Type: Spontaneous
  Country: US (occurrence: US)
  Receive Date: 20161031
  Receipt Date: 20161031
  Transmission Date: 20170207
  Serious: No
  Sender: FDA-Public Use
  Company Number: US-009507513-1610USA011034

PATIENT
  Age: 23 Year
  Sex: Female
  Weight: 63.49 kg

DRUGS (1)
  1. NUVARING [Suspect]
     Active Substance: ETHINYL ESTRADIOL\ETONOGESTREL
     Indication: CONTRACEPTION
     Dosage: 1 RING, QM(3 WEEKS IN 1 WEEK OUT)
     Route: 067
     Dates: start: 20160925

REACTIONS (1)
  - Abnormal withdrawal bleeding [Unknown]

NARRATIVE: CASE EVENT DATE: 20161016
